FAERS Safety Report 10173213 (Version 1)
Quarter: 2014Q2

REPORT INFORMATION
  Report Type: Spontaneous
  Country: US (occurrence: US)
  Receive Date: 20140515
  Receipt Date: 20140515
  Transmission Date: 20141212
  Serious: No
  Sender: FDA-Public Use
  Company Number: US-PFIZER INC-2014131799

PATIENT
  Age: 56 Year
  Sex: Female
  Weight: 86.17 kg

DRUGS (1)
  1. DILANTIN [Suspect]
     Indication: CONVULSION
     Dosage: 200 MG, 2X/DAY
     Dates: start: 2011

REACTIONS (2)
  - Blood cholesterol increased [Unknown]
  - Blood pressure increased [Unknown]
